FAERS Safety Report 16091586 (Version 2)
Quarter: 2019Q1

REPORT INFORMATION
  Report Type: Report from Study
  Country: US (occurrence: US)
  Receive Date: 20190319
  Receipt Date: 20190328
  Transmission Date: 20190418
  Serious: Yes (Hospitalization, Other)
  Sender: FDA-Public Use
  Company Number: US-MALLINCKRODT-T201901409

PATIENT
  Age: 46 Year
  Sex: Female

DRUGS (10)
  1. PREDNISONE. [Suspect]
     Active Substance: PREDNISONE
     Indication: PRODUCT USED FOR UNKNOWN INDICATION
     Dosage: 6-120 MG, UNK
     Route: 065
  2. REPOSITORY CORTICOTROPIN INJECTION [Suspect]
     Active Substance: CORTICOTROPIN
     Indication: SYSTEMIC LUPUS ERYTHEMATOSUS
     Dosage: 80 UNITS / 1 ML, 2 TIMES PER WEEK, TUESDAY/THURSDAY
     Route: 058
     Dates: start: 20140101
  3. REPOSITORY CORTICOTROPIN INJECTION [Suspect]
     Active Substance: CORTICOTROPIN
     Indication: VASCULITIS
     Dosage: 80 UNITS / 1 ML, 2 TIMES PER WEEK, TUESDAY/THURSDAY
     Route: 058
  4. REPOSITORY CORTICOTROPIN INJECTION [Suspect]
     Active Substance: CORTICOTROPIN
     Indication: SEIZURE
  5. CBD OIL [Concomitant]
     Active Substance: CANNABIDIOL\HERBALS
     Indication: SEIZURE
     Dosage: UNK, DAILY
     Route: 065
  6. REPOSITORY CORTICOTROPIN INJECTION [Suspect]
     Active Substance: CORTICOTROPIN
     Indication: RHEUMATOID ARTHRITIS
     Dosage: 80 UNITS / 1 ML, THRICE WEEKLY
     Route: 058
  7. IVIGLOB EX [Concomitant]
     Active Substance: HUMAN IMMUNOGLOBULIN G
     Indication: PRODUCT USED FOR UNKNOWN INDICATION
     Dosage: UNK
     Route: 042
     Dates: start: 2016
  8. KEPPRA [Concomitant]
     Active Substance: LEVETIRACETAM
     Indication: SEIZURE
     Dosage: UNK, DAILY
     Route: 065
  9. PLAQUENIL [Concomitant]
     Active Substance: HYDROXYCHLOROQUINE SULFATE
     Indication: SYSTEMIC LUPUS ERYTHEMATOSUS
     Dosage: UNK
     Route: 065
  10. SAVELLA [Concomitant]
     Active Substance: MILNACIPRAN HYDROCHLORIDE
     Indication: FIBROMYALGIA
     Dosage: UNK
     Route: 065

REACTIONS (25)
  - Oxygen saturation decreased [Unknown]
  - Hyperhidrosis [Recovering/Resolving]
  - Loss of personal independence in daily activities [Unknown]
  - Clonic convulsion [Not Recovered/Not Resolved]
  - Seizure [Not Recovered/Not Resolved]
  - Visual impairment [Not Recovered/Not Resolved]
  - Atrial septal defect [Unknown]
  - Mitral valve prolapse [Unknown]
  - Systemic lupus erythematosus [Not Recovered/Not Resolved]
  - Fatigue [Not Recovered/Not Resolved]
  - Chills [Unknown]
  - Weight decreased [Recovering/Resolving]
  - Nausea [Recovering/Resolving]
  - Fear of injection [Unknown]
  - Pulmonary mass [Recovered/Resolved]
  - Encephalitis [Unknown]
  - Fibromyalgia [Not Recovered/Not Resolved]
  - Malaise [Recovering/Resolving]
  - Insomnia [Unknown]
  - Skin hyperpigmentation [Unknown]
  - Cushingoid [Unknown]
  - Amnesia [Not Recovered/Not Resolved]
  - Fluid retention [Unknown]
  - Feeling abnormal [Unknown]
  - Wheelchair user [Unknown]

NARRATIVE: CASE EVENT DATE: 2017
